FAERS Safety Report 14687932 (Version 1)
Quarter: 2018Q1

REPORT INFORMATION
  Report Type: Other
  Country: DE (occurrence: DE)
  Receive Date: 20180328
  Receipt Date: 20180328
  Transmission Date: 20180509
  Serious: No
  Sender: FDA-Public Use
  Company Number: DE-LUPIN PHARMACEUTICALS INC.-2017-07861

PATIENT
  Age: 36 Year
  Sex: Female

DRUGS (2)
  1. SERTRALINE [Suspect]
     Active Substance: SERTRALINE HYDROCHLORIDE
     Indication: PERINATAL DEPRESSION
     Dosage: AT DOSE OF 1 TIME A DAY IN THE MORNING
     Route: 048
  2. SILOMAT /00184902/ [Suspect]
     Active Substance: PENTOXYVERINE CITRATE
     Indication: PROPHYLAXIS
     Dosage: 1 TIME 15 ML IN THE EVENING ; IN TOTAL
     Route: 048

REACTIONS (1)
  - Dizziness [Recovered/Resolved]

NARRATIVE: CASE EVENT DATE: 20170908
